FAERS Safety Report 19917604 (Version 1)
Quarter: 2021Q4

REPORT INFORMATION
  Report Type: Spontaneous
  Country: US (occurrence: US)
  Receive Date: 20211005
  Receipt Date: 20211005
  Transmission Date: 20220303
  Serious: No
  Sender: FDA-Public Use
  Company Number: US-TEVA-2021-US-1960899

PATIENT
  Sex: Female
  Weight: 74.8 kg

DRUGS (14)
  1. LOSARTAN [Suspect]
     Active Substance: LOSARTAN
     Route: 065
  2. OXYGEN [Concomitant]
     Active Substance: OXYGEN
  3. COLACE [Concomitant]
     Active Substance: DOCUSATE SODIUM
  4. ACETAMINOPHEN\HYDROCODONE [Concomitant]
     Active Substance: ACETAMINOPHEN\HYDROCODONE
  5. MELATONIN [Concomitant]
     Active Substance: MELATONIN
  6. TYLENOL [Concomitant]
     Active Substance: ACETAMINOPHEN
     Dosage: PM EXTRA STRENGTH
  7. PRASTERONE [Concomitant]
     Active Substance: PRASTERONE
  8. TOPIRAMATE [Concomitant]
     Active Substance: TOPIRAMATE
  9. ATORVASTATIN CALCIUM [Concomitant]
     Active Substance: ATORVASTATIN CALCIUM
  10. VENLAFAXINE HCL [Concomitant]
     Active Substance: VENLAFAXINE HYDROCHLORIDE
  11. Iron 159 [Concomitant]
  12. CYANOCOBALAMIN\DEXPANTHENOL\NIACINAMIDE\PYRIDOXINE HYDROCHLORIDE\RIBOF [Concomitant]
     Active Substance: CYANOCOBALAMIN\DEXPANTHENOL\NIACINAMIDE\PYRIDOXINE HYDROCHLORIDE\RIBOFLAVIN 5^-PHOSPHATE SODIUM\THIA
  13. MINERALS\VITAMINS [Concomitant]
     Active Substance: MINERALS\VITAMINS
     Dosage: 4-300-250
  14. KEYTRUDA [Concomitant]
     Active Substance: PEMBROLIZUMAB
     Dosage: 100 MG/4ML/VIAL

REACTIONS (2)
  - Blood pressure systolic increased [Unknown]
  - Weight decreased [Unknown]
